FAERS Safety Report 19976054 (Version 2)
Quarter: 2021Q4

REPORT INFORMATION
  Report Type: Spontaneous
  Country: TR (occurrence: TR)
  Receive Date: 20211020
  Receipt Date: 20211130
  Transmission Date: 20220303
  Serious: Yes (Other)
  Sender: FDA-Public Use
  Company Number: TR-PFIZER INC-202101229118

PATIENT
  Age: 22 Year
  Sex: Male

DRUGS (3)
  1. ELELYSO [Suspect]
     Active Substance: TALIGLUCERASE ALFA
     Indication: Hepatosplenomegaly
     Dosage: UNK
     Route: 042
     Dates: start: 2019
  2. ELELYSO [Suspect]
     Active Substance: TALIGLUCERASE ALFA
     Indication: Osteoporosis
  3. ELELYSO [Suspect]
     Active Substance: TALIGLUCERASE ALFA
     Indication: Thrombocytopenia

REACTIONS (2)
  - Alopecia [Not Recovered/Not Resolved]
  - Off label use [Unknown]

NARRATIVE: CASE EVENT DATE: 20190101
